FAERS Safety Report 7828101-6 (Version None)
Quarter: 2011Q4

REPORT INFORMATION
  Report Type: 
  Country: None (occurrence: None)
  Receive Date: 20111020
  Receipt Date: 20111012
  Transmission Date: 20120403
  Serious: Yes (Hospitalization, Other)
  Sender: FDA-Public Use
  Company Number: DE-ABBOTT-11P-062-0720370-00

PATIENT
  Sex: Female
  Weight: 48 kg

DRUGS (22)
  1. KEVATRIL [Concomitant]
     Indication: PRODUCT USED FOR UNKNOWN INDICATION
     Dosage: I.V.
  2. HUMIRA [Suspect]
     Indication: CROHN'S DISEASE
     Route: 058
     Dates: start: 20110201, end: 20110401
  3. NOVALGIN [Concomitant]
     Indication: PRODUCT USED FOR UNKNOWN INDICATION
  4. ENOXAPARIN SODIUM [Concomitant]
     Indication: PRODUCT USED FOR UNKNOWN INDICATION
  5. FENTANYL [Concomitant]
     Indication: PRODUCT USED FOR UNKNOWN INDICATION
     Route: 062
  6. COTRIM DS [Concomitant]
     Indication: PRODUCT USED FOR UNKNOWN INDICATION
     Dosage: MONDAYS + THURSDAYS
  7. ACETAMINOPHEN [Concomitant]
     Indication: PRODUCT USED FOR UNKNOWN INDICATION
  8. CALCIMAGON-D3 [Concomitant]
     Indication: PRODUCT USED FOR UNKNOWN INDICATION
  9. INFLIXIMAB [Concomitant]
     Indication: PRODUCT USED FOR UNKNOWN INDICATION
     Dates: start: 20110728
  10. JONOSTERIL [Concomitant]
     Indication: PRODUCT USED FOR UNKNOWN INDICATION
  11. MORPHINE [Concomitant]
     Indication: PRODUCT USED FOR UNKNOWN INDICATION
     Dosage: X.C.
  12. TAZOBAC [Concomitant]
     Indication: PRODUCT USED FOR UNKNOWN INDICATION
  13. HUMIRA [Suspect]
     Route: 058
     Dates: start: 20110401
  14. DEXAMETHASONE [Concomitant]
     Indication: EPISCLERITIS
     Dosage: ON DEMAND
  15. AMITRYPTYLIN [Concomitant]
     Indication: PRODUCT USED FOR UNKNOWN INDICATION
  16. TACROLIMUS [Concomitant]
     Indication: PRODUCT USED FOR UNKNOWN INDICATION
     Route: 048
     Dates: start: 20110501
  17. MESALAMINE [Concomitant]
     Indication: PRODUCT USED FOR UNKNOWN INDICATION
     Dosage: GRANULAT, TID
  18. PANTOPRAZOLE [Concomitant]
     Indication: PRODUCT USED FOR UNKNOWN INDICATION
  19. AMITRIPTYLINE HCL [Concomitant]
     Indication: PRODUCT USED FOR UNKNOWN INDICATION
  20. BIFITERAL [Concomitant]
     Indication: PRODUCT USED FOR UNKNOWN INDICATION
     Dosage: OPD
  21. BUSCOPAN PLUS [Concomitant]
     Indication: PRODUCT USED FOR UNKNOWN INDICATION
  22. GABAPENTIN [Concomitant]
     Indication: PRODUCT USED FOR UNKNOWN INDICATION

REACTIONS (6)
  - NIGHT SWEATS [None]
  - VENOUS THROMBOSIS [None]
  - ABDOMINAL PAIN LOWER [None]
  - GENERAL PHYSICAL HEALTH DETERIORATION [None]
  - CROHN'S DISEASE [None]
  - HAEMATOCHEZIA [None]
